FAERS Safety Report 5712910-3 (Version None)
Quarter: 2008Q2

REPORT INFORMATION
  Report Type: 
  Country: None (occurrence: None)
  Receive Date: 20080421
  Receipt Date: 20080421
  Transmission Date: 20081010
  Serious: Yes (Hospitalization)
  Sender: FDA-Public Use
  Company Number: None

PATIENT
  Sex: Female
  Weight: 81.6 kg

DRUGS (26)
  1. CYCLOPHOSPHAMIDE [Suspect]
     Dosage: 1402 MG
  2. DOXIL [Suspect]
     Dosage: 74 MG
  3. NEULASTA [Suspect]
     Dosage: 6 MG
  4. PREDNISONE [Suspect]
     Dosage: 350 MG
  5. RITUXIMAB (MOAB C2B8 ANTI CD20, CHIMERIC) [Suspect]
     Dosage: 701 MG
  6. VINCRISTINE SULFATE [Suspect]
     Dosage: 2 MG
  7. ATENOLOL [Concomitant]
  8. AVANDIA [Concomitant]
  9. AMOXICILLIN [Concomitant]
  10. DIOVAN [Concomitant]
  11. ENOXAPARIN SODIUM [Concomitant]
  12. EPOETIN ALFA [Concomitant]
  13. ESOMEPRAZOLE MAGNESIUM [Concomitant]
  14. HEPARIN [Concomitant]
  15. INSULIN [Concomitant]
  16. LEVALBUTEROL HCL [Concomitant]
  17. NEXIUM [Concomitant]
  18. SULFASALAZINE [Concomitant]
  19. TRIAMTERENE AND HYDROCHLOROTHIAZIDE [Concomitant]
  20. VANCOMYCIN [Concomitant]
  21. ZOLOFT [Concomitant]
  22. CARVEDILOL [Concomitant]
  23. PIOGLITAZONE [Concomitant]
  24. PROPOXYPHENE HCL [Concomitant]
  25. SERTRALINE [Concomitant]
  26. VALSARTAN [Concomitant]

REACTIONS (11)
  - ALANINE AMINOTRANSFERASE INCREASED [None]
  - ASPARTATE AMINOTRANSFERASE INCREASED [None]
  - ASTHENIA [None]
  - AXILLARY VEIN THROMBOSIS [None]
  - BLOOD ALKALINE PHOSPHATASE INCREASED [None]
  - CATHETER RELATED INFECTION [None]
  - OEDEMA PERIPHERAL [None]
  - PNEUMONIA [None]
  - PULMONARY EMBOLISM [None]
  - STAPHYLOCOCCAL INFECTION [None]
  - SUBCLAVIAN VEIN THROMBOSIS [None]
